FAERS Safety Report 6566036-X (Version None)
Quarter: 2010Q1

REPORT INFORMATION
  Report Type: 
  Country: None (occurrence: None)
  Receive Date: 20100202
  Receipt Date: 20100120
  Transmission Date: 20100710
  Serious: Yes (Other)
  Sender: FDA-Public Use
  Company Number: TW-BRISTOL-MYERS SQUIBB COMPANY-14956429

PATIENT
  Age: 61 Year

DRUGS (5)
  1. MITOMYCIN [Suspect]
     Indication: PENIS CARCINOMA
  2. BLEOMYCIN SULFATE [Suspect]
     Indication: PENIS CARCINOMA
  3. CISPLATIN [Suspect]
     Indication: PENIS CARCINOMA
  4. METHOTREXATE [Suspect]
     Indication: PENIS CARCINOMA
  5. 5-FLUOROURACIL [Suspect]
     Indication: PENIS CARCINOMA

REACTIONS (2)
  - DECREASED APPETITE [None]
  - FEBRILE NEUTROPENIA [None]
